FAERS Safety Report 6239905-8 (Version None)
Quarter: 2009Q2

REPORT INFORMATION
  Report Type: 
  Country: None (occurrence: None)
  Receive Date: 20090618
  Receipt Date: 20090618
  Transmission Date: 20091009
  Serious: Yes (Other)
  Sender: FDA-Public Use
  Company Number: None

PATIENT
  Sex: Female

DRUGS (1)
  1. FLUOXETINE [Suspect]
     Indication: DYSTHYMIC DISORDER
     Dosage: 60MG DAILY PO
     Route: 048

REACTIONS (2)
  - CONTUSION [None]
  - SUICIDAL IDEATION [None]
